FAERS Safety Report 5135757-8 (Version None)
Quarter: 2006Q4

REPORT INFORMATION
  Report Type: 
  Country: None (occurrence: None)
  Receive Date: 20061026
  Receipt Date: 20060427
  Transmission Date: 20070319
  Serious: No
  Sender: FDA-Public Use
  Company Number: US-BRISTOL-MYERS SQUIBB COMPANY-13358874

PATIENT
  Sex: Male

DRUGS (1)
  1. CAFCIT [Suspect]
     Indication: APNOEA
     Route: 048

REACTIONS (1)
  - MEDICATION ERROR [None]
